FAERS Safety Report 9956031 (Version 2)
Quarter: 2014Q1

REPORT INFORMATION
  Report Type: Report from Study
  Country: US (occurrence: US)
  Receive Date: 20140304
  Receipt Date: 20140304
  Transmission Date: 20141002
  Serious: No
  Sender: FDA-Public Use
  Company Number: US-ABBVIE-13P-163-1035677-00

PATIENT
  Age: 59 Year
  Sex: Female

DRUGS (7)
  1. HUMIRA [Suspect]
     Indication: COLITIS ULCERATIVE
     Route: 058
     Dates: start: 20121226, end: 20121226
  2. HUMIRA [Suspect]
     Route: 058
     Dates: start: 20130109, end: 20130109
  3. HUMIRA [Suspect]
     Route: 058
  4. DIOVAN [Concomitant]
     Indication: HYPERTENSION
     Dosage: 160 MG DAILY
  5. TYLENOL [Concomitant]
     Indication: PAIN
  6. EYE DROPS [Concomitant]
     Indication: EYE DISORDER
     Dosage: MONTHLY
  7. LUCENTIS [Concomitant]
     Indication: EYE DISORDER

REACTIONS (2)
  - Injection site pain [Recovered/Resolved]
  - Cough [Not Recovered/Not Resolved]
